FAERS Safety Report 4856206-0 (Version None)
Quarter: 2005Q4

REPORT INFORMATION
  Report Type: 
  Country: None (occurrence: None)
  Receive Date: 20051216
  Receipt Date: 20040510
  Transmission Date: 20060501
  Serious: Yes (Hospitalization, Other)
  Sender: FDA-Public Use
  Company Number: US-MERCK-0405USA00635

PATIENT
  Age: 65 Year
  Sex: Female
  Weight: 91 kg

DRUGS (6)
  1. VIOXX [Suspect]
     Indication: PSORIATIC ARTHROPATHY
     Route: 048
     Dates: start: 20000126, end: 20020101
  2. LEVOXYL [Concomitant]
     Indication: THYROID DISORDER
     Route: 065
  3. HYDROCHLOROTHIAZIDE [Concomitant]
     Indication: CORONARY ARTERY SURGERY
     Route: 065
  4. CARDIZEM [Concomitant]
     Indication: CARDIAC DISORDER
     Route: 065
  5. LOVASTATIN [Concomitant]
     Indication: CORONARY ARTERY SURGERY
     Route: 065
  6. PREMARIN [Concomitant]
     Indication: HORMONE REPLACEMENT THERAPY
     Route: 065
     Dates: start: 19680101, end: 20030101

REACTIONS (24)
  - ANGINA PECTORIS [None]
  - AORTIC VALVE DISEASE [None]
  - ARTERIOSCLEROSIS [None]
  - ARTERIOSCLEROSIS CORONARY ARTERY [None]
  - ATRIAL FIBRILLATION [None]
  - BLOOD CHOLESTEROL INCREASED [None]
  - CARDIAC FAILURE CONGESTIVE [None]
  - CARDIAC VALVE DISEASE [None]
  - CORONARY ARTERY DISEASE [None]
  - CORONARY ARTERY OCCLUSION [None]
  - DRUG HYPERSENSITIVITY [None]
  - DYSURIA [None]
  - GALLBLADDER DISORDER [None]
  - GASTROINTESTINAL DISORDER [None]
  - HEART RATE IRREGULAR [None]
  - HYPERTENSION [None]
  - HYPOTHYROIDISM [None]
  - MYOCARDIAL INFARCTION [None]
  - NAUSEA [None]
  - OBESITY [None]
  - RASH [None]
  - URINARY TRACT INFECTION [None]
  - URINARY TRACT INFECTION PSEUDOMONAL [None]
  - VOMITING [None]
